FAERS Safety Report 16792212 (Version 1)
Quarter: 2019Q3

REPORT INFORMATION
  Report Type: Spontaneous
  Country: US (occurrence: US)
  Receive Date: 20190910
  Receipt Date: 20190910
  Transmission Date: 20191005
  Serious: No
  Sender: FDA-Public Use
  Company Number: US-ROCHE-2155869

PATIENT
  Age: 5 Year
  Sex: Male

DRUGS (2)
  1. GAMMAGLOBULIN [Concomitant]
     Active Substance: HUMAN IMMUNOGLOBULIN G
     Indication: EPSTEIN-BARR VIRUS INFECTION
     Dosage: 1 G/KG
     Route: 042
  2. GANCICLOVIR. [Suspect]
     Active Substance: GANCICLOVIR
     Indication: EPSTEIN-BARR VIRUS INFECTION
     Route: 042

REACTIONS (1)
  - Treatment failure [Unknown]
